FAERS Safety Report 13754661 (Version 1)
Quarter: 2017Q3

REPORT INFORMATION
  Report Type: Spontaneous
  Country: US (occurrence: US)
  Receive Date: 20170714
  Receipt Date: 20170714
  Transmission Date: 20171127
  Serious: Yes (Hospitalization, Disabling, Other)
  Sender: FDA-Public Use
  Company Number: None

PATIENT
  Age: 48 Year
  Sex: Female
  Weight: 42.68 kg

DRUGS (10)
  1. KLONOPIN [Suspect]
     Active Substance: CLONAZEPAM
  2. XANAX [Suspect]
     Active Substance: ALPRAZOLAM
  3. ALBUTEROL. [Concomitant]
     Active Substance: ALBUTEROL
  4. GABAPENTIN. [Concomitant]
     Active Substance: GABAPENTIN
  5. TRAZODONE [Concomitant]
     Active Substance: TRAZODONE HYDROCHLORIDE
  6. COREG [Concomitant]
     Active Substance: CARVEDILOL
  7. CYMBALTA [Concomitant]
     Active Substance: DULOXETINE HYDROCHLORIDE
  8. MAXZIDE [Concomitant]
     Active Substance: HYDROCHLOROTHIAZIDE\TRIAMTERENE
  9. BACLOFEN. [Concomitant]
     Active Substance: BACLOFEN
  10. O2 [Concomitant]

REACTIONS (3)
  - Akathisia [None]
  - Suicide attempt [None]
  - Seizure [None]
